FAERS Safety Report 20264542 (Version 3)
Quarter: 2022Q1

REPORT INFORMATION
  Report Type: Report from Study
  Country: US (occurrence: US)
  Receive Date: 20211231
  Receipt Date: 20220105
  Transmission Date: 20220424
  Serious: No
  Sender: FDA-Public Use
  Company Number: US-NOVARTISTESTPH-NVSC2021US300286

PATIENT
  Sex: Male

DRUGS (1)
  1. GLATOPA [Suspect]
     Active Substance: GLATIRAMER ACETATE
     Indication: Product used for unknown indication
     Route: 058

REACTIONS (6)
  - Pain in extremity [Unknown]
  - Muscle twitching [Unknown]
  - Myalgia [Unknown]
  - Injection site pain [Unknown]
  - Injection site swelling [Unknown]
  - Product administered at inappropriate site [Unknown]
